FAERS Safety Report 25360462 (Version 1)
Quarter: 2025Q2

REPORT INFORMATION
  Report Type: Spontaneous
  Country: GB (occurrence: GB)
  Receive Date: 20250527
  Receipt Date: 20250527
  Transmission Date: 20250717
  Serious: Yes (Death, Life-Threatening, Other)
  Sender: ACCORD
  Company Number: None

PATIENT
  Sex: Male

DRUGS (9)
  1. CLOPIDOGREL [Suspect]
     Active Substance: CLOPIDOGREL BISULFATE
     Indication: Transient ischaemic attack
     Dates: start: 20250128, end: 20250430
  2. RAMIPRIL [Concomitant]
     Active Substance: RAMIPRIL
  3. BENDROFLUMETHIAZIDE [Concomitant]
     Active Substance: BENDROFLUMETHIAZIDE
  4. ESOMEPRAZOLE [Concomitant]
     Active Substance: ESOMEPRAZOLE
  5. LERCANIDIPINE [Concomitant]
     Active Substance: LERCANIDIPINE
  6. ATORVASTATIN [Concomitant]
     Active Substance: ATORVASTATIN
  7. FINASTERIDE [Concomitant]
     Active Substance: FINASTERIDE
  8. ACETAMINOPHEN [Concomitant]
     Active Substance: ACETAMINOPHEN
  9. AMITRIPTYLINE [Concomitant]
     Active Substance: AMITRIPTYLINE

REACTIONS (2)
  - Subdural haematoma [Fatal]
  - Accident at home [Unknown]

NARRATIVE: CASE EVENT DATE: 20250429
